FAERS Safety Report 9332749 (Version 3)
Quarter: 2013Q3

REPORT INFORMATION
  Report Type: Report from Study
  Country: US (occurrence: US)
  Receive Date: 20130606
  Receipt Date: 20130702
  Transmission Date: 20140515
  Serious: Yes (Hospitalization)
  Sender: FDA-Public Use
  Company Number: US-ACTELION-A-US2013-83905

PATIENT
  Age: 56 Year
  Sex: Female

DRUGS (2)
  1. TRACLEER [Suspect]
     Indication: PULMONARY ARTERIAL HYPERTENSION
     Dosage: 125 MG, UNK
     Route: 048
  2. TRACLEER [Suspect]
     Dosage: 62.5, MG
     Route: 048

REACTIONS (7)
  - Lung disorder [Unknown]
  - Cardiac disorder [Recovering/Resolving]
  - Pulmonary arterial hypertension [Recovering/Resolving]
  - Oxygen saturation decreased [Recovering/Resolving]
  - Malaise [Unknown]
  - Infection [Recovering/Resolving]
  - Dyspnoea exertional [Recovering/Resolving]
